FAERS Safety Report 7491800-2 (Version None)
Quarter: 2011Q2

REPORT INFORMATION
  Report Type: 
  Country: None (occurrence: None)
  Receive Date: 20110518
  Receipt Date: 20110518
  Transmission Date: 20111010
  Serious: Yes (Other)
  Sender: FDA-Public Use
  Company Number: None

PATIENT
  Sex: Male

DRUGS (3)
  1. HALDOL [Suspect]
  2. FANAPT [Suspect]
  3. UNSPECIFIED HIV MEDICATIONS [Concomitant]

REACTIONS (4)
  - EXTRAPYRAMIDAL DISORDER [None]
  - METABOLIC SYNDROME [None]
  - DRUG INEFFECTIVE [None]
  - DYSARTHRIA [None]
